FAERS Safety Report 5456506-X (Version None)
Quarter: 2007Q3

REPORT INFORMATION
  Report Type: 
  Country: None (occurrence: None)
  Receive Date: 20070918
  Receipt Date: 20070430
  Transmission Date: 20080115
  Serious: Yes (Other)
  Sender: FDA-Public Use
  Company Number: US-ASTRAZENECA-2006UW25249

PATIENT
  Age: 47 Year
  Sex: Male
  Weight: 104.5 kg

DRUGS (1)
  1. SEROQUEL [Suspect]
     Indication: DEPRESSION
     Route: 048
     Dates: start: 20010101

REACTIONS (2)
  - DIABETES MELLITUS [None]
  - PANCREATITIS [None]
